FAERS Safety Report 7432960-9 (Version None)
Quarter: 2011Q2

REPORT INFORMATION
  Report Type: 
  Country: None (occurrence: None)
  Receive Date: 20110422
  Receipt Date: 20110419
  Transmission Date: 20111010
  Serious: No
  Sender: FDA-Public Use
  Company Number: US-PFIZER INC-2011051315

PATIENT
  Sex: Female
  Weight: 82.54 kg

DRUGS (7)
  1. LIPITOR [Suspect]
     Dosage: UNK
     Route: 048
  2. METOPROLOL [Concomitant]
     Indication: CARDIAC DISORDER
     Dosage: UNK
  3. STELAZINE [Concomitant]
     Indication: NERVOUS SYSTEM DISORDER
     Dosage: UNK
  4. PLAVIX [Concomitant]
     Indication: CARDIAC DISORDER
     Dosage: UNK
  5. INSULIN [Concomitant]
     Indication: DIABETES MELLITUS
     Dosage: UNK
  6. ELAVIL [Concomitant]
     Indication: NERVOUS SYSTEM DISORDER
     Dosage: UNK
  7. LIPITOR [Suspect]
     Dosage: 10 MG, 1X/DAY
     Route: 048
     Dates: end: 20110201

REACTIONS (6)
  - LIMB DISCOMFORT [None]
  - MYALGIA [None]
  - MUSCULAR WEAKNESS [None]
  - PARAESTHESIA [None]
  - HYPOAESTHESIA [None]
  - MUSCLE DISORDER [None]
